FAERS Safety Report 7332190-5 (Version None)
Quarter: 2011Q1

REPORT INFORMATION
  Report Type: 
  Country: None (occurrence: None)
  Receive Date: 20110304
  Receipt Date: 20110221
  Transmission Date: 20110831
  Serious: Yes (Other)
  Sender: FDA-Public Use
  Company Number: PT-EISAI INC-E3810-04472-SPO-PT

PATIENT
  Age: 29 Year
  Sex: Male

DRUGS (3)
  1. PARIET (RABEPRAZOLE) [Suspect]
     Indication: GASTROOESOPHAGEAL REFLUX DISEASE
     Route: 048
     Dates: start: 20110218, end: 20110219
  2. EFFEXOR [Concomitant]
  3. BROMALEX [Concomitant]

REACTIONS (2)
  - DIARRHOEA HAEMORRHAGIC [None]
  - ABDOMINAL PAIN [None]
